FAERS Safety Report 6849509-1 (Version None)
Quarter: 2010Q3

REPORT INFORMATION
  Report Type: 
  Country: None (occurrence: None)
  Receive Date: 20100716
  Receipt Date: 20071008
  Transmission Date: 20110219
  Serious: No
  Sender: FDA-Public Use
  Company Number: US-PFIZER INC-2007083178

PATIENT
  Sex: Female
  Weight: 63.6 kg

DRUGS (12)
  1. CHANTIX [Suspect]
     Indication: SMOKING CESSATION THERAPY
     Route: 048
     Dates: start: 20070913, end: 20071005
  2. KLONOPIN [Interacting]
     Indication: MYOCLONUS
  3. MESTINON [Interacting]
  4. PLAQUENIL [Concomitant]
  5. ESTROPIPATE [Concomitant]
  6. RANITIDINE [Concomitant]
  7. DARVON [Concomitant]
  8. DOXEPIN HCL [Concomitant]
  9. AMBIEN [Concomitant]
  10. VICODIN [Concomitant]
  11. IMITREX [Concomitant]
  12. LIDOCAINE [Concomitant]
     Route: 062

REACTIONS (5)
  - DRUG INTERACTION [None]
  - GLAUCOMA [None]
  - INSOMNIA [None]
  - MYOCLONUS [None]
  - NAUSEA [None]
